FAERS Safety Report 8239376-6 (Version None)
Quarter: 2012Q1

REPORT INFORMATION
  Report Type: 
  Country: None (occurrence: None)
  Receive Date: 20120326
  Receipt Date: 20120308
  Transmission Date: 20120608
  Serious: Yes (Death, Hospitalization)
  Sender: FDA-Public Use
  Company Number: NSR_00509_2012

PATIENT
  Age: 36 Year
  Sex: Female

DRUGS (8)
  1. LORAZEPAM [Concomitant]
  2. MIDAZOLAM [Concomitant]
  3. FLUOXETINE [Suspect]
     Indication: MAJOR DEPRESSION
     Dosage: (DF [ESTIMATED INGESTED DOSE 200 MG]), (20 MG)
  4. MOCLOBEMIDE (MOCLOBEMIDE) [Suspect]
     Indication: MAJOR DEPRESSION
     Dosage: (150 MG, [ESTIMATED INGESTED DOSE, 4,500 MG]), (150 MG TID)
  5. ALPRAZOLAM [Concomitant]
  6. ESTAZOLAM [Concomitant]
  7. PROPRANOLOL [Concomitant]
  8. BROMAZEPAM [Concomitant]

REACTIONS (29)
  - OXYGEN SATURATION DECREASED [None]
  - BLOOD PRESSURE DECREASED [None]
  - SINUS TACHYCARDIA [None]
  - RESPIRATORY RATE INCREASED [None]
  - MUSCLE TWITCHING [None]
  - HYPERREFLEXIA [None]
  - RHABDOMYOLYSIS [None]
  - COMA [None]
  - BODY TEMPERATURE INCREASED [None]
  - MYDRIASIS [None]
  - INTENTIONAL OVERDOSE [None]
  - MUSCLE RIGIDITY [None]
  - BLOOD GLUCOSE INCREASED [None]
  - ECCHYMOSIS [None]
  - LEUKOCYTOSIS [None]
  - BRADYCARDIA [None]
  - THROMBOCYTOPENIA [None]
  - BLOOD CREATINE PHOSPHOKINASE INCREASED [None]
  - HYPERHIDROSIS [None]
  - HYPOTENSION [None]
  - VENTRICULAR ARRHYTHMIA [None]
  - HYPERTONIA [None]
  - DISSEMINATED INTRAVASCULAR COAGULATION [None]
  - SEROTONIN SYNDROME [None]
  - SUICIDE ATTEMPT [None]
  - RENAL FAILURE [None]
  - ELECTROCARDIOGRAM QT PROLONGED [None]
  - MOUTH HAEMORRHAGE [None]
  - HYPERTHERMIA [None]
